FAERS Safety Report 4347819-3 (Version None)
Quarter: 2004Q2

REPORT INFORMATION
  Report Type: 
  Country: None (occurrence: None)
  Receive Date: 20040422
  Receipt Date: 20040413
  Transmission Date: 20050107
  Serious: Yes (Hospitalization)
  Sender: FDA-Public Use
  Company Number: 233978K03USA

PATIENT
  Age: 55 Year
  Sex: Male

DRUGS (4)
  1. REBIF [Suspect]
     Indication: MULTIPLE SCLEROSIS
     Dosage: SUBCUTANEOUS
     Route: 058
     Dates: start: 20030801
  2. AZATHIOPRINE [Suspect]
  3. CYCLOSPORINE [Suspect]
  4. PREDNISONE [Suspect]

REACTIONS (9)
  - ARTHRALGIA [None]
  - ERYTHEMA [None]
  - FEELING HOT [None]
  - IMMUNOSUPPRESSION [None]
  - INFLUENZA LIKE ILLNESS [None]
  - LYMPH GLAND INFECTION [None]
  - OEDEMA PERIPHERAL [None]
  - PHARYNGITIS [None]
  - SEPSIS [None]
